FAERS Safety Report 5506388-2 (Version None)
Quarter: 2007Q4

REPORT INFORMATION
  Report Type: 
  Country: None (occurrence: None)
  Receive Date: 20071105
  Receipt Date: 20071025
  Transmission Date: 20080405
  Serious: Yes (Other)
  Sender: FDA-Public Use
  Company Number: ES-JNJFOC-20070904645

PATIENT
  Age: 15 Year
  Sex: Female

DRUGS (9)
  1. REMICADE [Suspect]
     Route: 042
  2. REMICADE [Suspect]
     Route: 042
  3. REMICADE [Suspect]
     Route: 042
  4. REMICADE [Suspect]
     Indication: COLITIS ULCERATIVE
     Dosage: 3 DOSES OF 5MG/KG
     Route: 042
  5. POLARAMINE [Concomitant]
     Indication: PREMEDICATION
     Route: 042
  6. CORTICOIDS [Concomitant]
     Indication: PREMEDICATION
  7. ACETAMINOPHEN [Concomitant]
     Indication: PREMEDICATION
  8. AZATHIOPRINE [Concomitant]
     Indication: DRUG USE FOR UNKNOWN INDICATION
  9. HYDROCORTISONE [Concomitant]
     Indication: PREMEDICATION
     Route: 042

REACTIONS (9)
  - DRUG INEFFECTIVE [None]
  - DYSPNOEA [None]
  - HYPERHIDROSIS [None]
  - HYPERTENSION [None]
  - INFUSION RELATED REACTION [None]
  - LARYNGEAL OEDEMA [None]
  - OEDEMA [None]
  - RASH [None]
  - SUFFOCATION FEELING [None]
